FAERS Safety Report 9478113 (Version 1)
Quarter: 2013Q3

REPORT INFORMATION
  Report Type: Spontaneous
  Country: US (occurrence: US)
  Receive Date: 20130827
  Receipt Date: 20130827
  Transmission Date: 20140515
  Serious: Yes (Hospitalization)
  Sender: FDA-Public Use
  Company Number: US-BAYER-2013-103237

PATIENT
  Age: 40 Year
  Sex: Female

DRUGS (7)
  1. YASMIN [Suspect]
  2. ACTOS [Concomitant]
  3. HYZAAR [Concomitant]
  4. LOPRESSOR [Concomitant]
  5. PRILOSEC [Concomitant]
  6. DILTIAZEM [Concomitant]
  7. CARDIZEM LA [Concomitant]

REACTIONS (2)
  - Pulmonary embolism [None]
  - Deep vein thrombosis [None]
